FAERS Safety Report 7406345-5 (Version None)
Quarter: 2011Q2

REPORT INFORMATION
  Report Type: 
  Country: None (occurrence: None)
  Receive Date: 20110411
  Receipt Date: 20110401
  Transmission Date: 20111010
  Serious: Yes (Hospitalization)
  Sender: FDA-Public Use
  Company Number: US-ASTRAZENECA-2011SE18635

PATIENT
  Age: 858 Month
  Sex: Female
  Weight: 68 kg

DRUGS (6)
  1. ACCURETIC [Concomitant]
     Indication: ATRIAL FIBRILLATION
     Dosage: 10/12.5 MG DAILY
  2. COUMADIN [Concomitant]
     Indication: ATRIAL FIBRILLATION
  3. CRESTOR [Suspect]
     Indication: DYSLIPIDAEMIA
     Route: 048
  4. ASPIRIN [Concomitant]
  5. MULTAQ [Suspect]
     Indication: ATRIAL FIBRILLATION
     Route: 048
     Dates: start: 20100401, end: 20100430
  6. METOPROLOL TARTRATE [Concomitant]
     Indication: ATRIAL FIBRILLATION
     Route: 048

REACTIONS (11)
  - ANAEMIA [None]
  - INTERNATIONAL NORMALISED RATIO INCREASED [None]
  - MALAISE [None]
  - HEPATITIS [None]
  - DECREASED APPETITE [None]
  - ABDOMINAL PAIN [None]
  - NAUSEA [None]
  - LIVER FUNCTION TEST ABNORMAL [None]
  - BLOOD POTASSIUM DECREASED [None]
  - HAEMATURIA [None]
  - FATIGUE [None]
